FAERS Safety Report 4833285-8 (Version None)
Quarter: 2005Q4

REPORT INFORMATION
  Report Type: 
  Country: None (occurrence: None)
  Receive Date: 20051117
  Receipt Date: 20051104
  Transmission Date: 20060501
  Serious: Yes (Hospitalization, Other)
  Sender: FDA-Public Use
  Company Number: USA-2005-0021792

PATIENT
  Age: 77 Year
  Sex: Male

DRUGS (1)
  1. SENNOSIDES (SIMILAR TO ANDA 9-939)(SENNOSIDE A+B) [Suspect]
     Indication: CONSTIPATION
     Dosage: SEE TEXT

REACTIONS (9)
  - ANTI-HBC IGG ANTIBODY POSITIVE [None]
  - ANTI-HBE ANTIBODY POSITIVE [None]
  - CARDIAC MURMUR [None]
  - CHOLELITHIASIS [None]
  - CREPITATIONS [None]
  - HEPATITIS B SURFACE ANTIGEN POSITIVE [None]
  - HEPATITIS CHOLESTATIC [None]
  - INJURY [None]
  - LIVER DISORDER [None]
